FAERS Safety Report 17069466 (Version 3)
Quarter: 2019Q4

REPORT INFORMATION
  Report Type: Report from Study
  Country: None (occurrence: US)
  Receive Date: 20191125
  Receipt Date: 20191204
  Transmission Date: 20200122
  Serious: Yes (Hospitalization, Other)
  Sender: FDA-Public Use
  Company Number: US-ABBVIE-19K-163-2966933-00

PATIENT
  Age: 76 Year
  Sex: Female

DRUGS (3)
  1. HUMIRA [Suspect]
     Active Substance: ADALIMUMAB
     Indication: CROHN^S DISEASE
     Dosage: FOUR SHOTS OF 40MG
     Route: 058
     Dates: start: 20191025, end: 20191025
  2. HUMIRA [Suspect]
     Active Substance: ADALIMUMAB
     Dosage: TWO SHOTS OF 40MG
     Route: 058
     Dates: start: 20191108, end: 20191108
  3. HUMIRA [Suspect]
     Active Substance: ADALIMUMAB
     Route: 058
     Dates: start: 201911

REACTIONS (6)
  - Injection site reaction [Unknown]
  - Chest pain [Recovered/Resolved]
  - Urinary tract infection [Recovering/Resolving]
  - Gastritis [Recovering/Resolving]
  - Blood potassium decreased [Recovering/Resolving]
  - Hospitalisation [Recovered/Resolved]

NARRATIVE: CASE EVENT DATE: 2019
